FAERS Safety Report 6240461-9 (Version None)
Quarter: 2009Q2

REPORT INFORMATION
  Report Type: 
  Country: None (occurrence: None)
  Receive Date: 20090623
  Receipt Date: 20090407
  Transmission Date: 20091009
  Serious: No
  Sender: FDA-Public Use
  Company Number: US-ASTRAZENECA-2009UW06130

PATIENT
  Age: 60 Year
  Sex: Female
  Weight: 68.5 kg

DRUGS (6)
  1. PULMICORT FLEXHALER [Suspect]
     Indication: ASTHMA
     Dosage: 360, TWICE DAILY
     Route: 055
     Dates: start: 20030101
  2. RISPIRADOL [Concomitant]
  3. LEVOTHYROXINE SODIUM [Concomitant]
     Indication: THYROID DISORDER
  4. LEXAPRO [Concomitant]
  5. PREMARIN [Concomitant]
  6. LOPERAMIDE HYDROCHLORIDE [Concomitant]
     Indication: DIARRHOEA

REACTIONS (2)
  - BLOOD PRESSURE INCREASED [None]
  - DYSGEUSIA [None]
